FAERS Safety Report 4471871-8 (Version None)
Quarter: 2004Q4

REPORT INFORMATION
  Report Type: 
  Country: None (occurrence: None)
  Receive Date: 20041012
  Receipt Date: 20041004
  Transmission Date: 20050328
  Serious: Yes (Other)
  Sender: FDA-Public Use
  Company Number: PHFR2004GB03740

PATIENT
  Age: 61 Year
  Sex: Male
  Weight: 75 kg

DRUGS (3)
  1. TERBINAFINE HCL [Suspect]
     Indication: FUNGAL INFECTION
     Dosage: 250 MG, QD
     Route: 048
     Dates: start: 20040422, end: 20040804
  2. VERAPAMIL [Suspect]
     Indication: WOLFF-PARKINSON-WHITE SYNDROME
     Dosage: 300MG/DAY
     Route: 048
     Dates: start: 19990101
  3. ZANTAC [Concomitant]
     Indication: DYSPEPSIA
     Dosage: 150MG/DAY
     Route: 048
     Dates: start: 20020101

REACTIONS (4)
  - DRUG INTERACTION [None]
  - HEADACHE [None]
  - MALAISE [None]
  - PALPITATIONS [None]
